FAERS Safety Report 23397954 (Version 1)
Quarter: 2024Q1

REPORT INFORMATION
  Report Type: Spontaneous
  Country: US (occurrence: US)
  Receive Date: 20240112
  Receipt Date: 20240112
  Transmission Date: 20240409
  Serious: No
  Sender: FDA-Public Use
  Company Number: US-PFIZER INC-PV202400003210

PATIENT
  Age: 86 Year

DRUGS (1)
  1. INDOMETHACIN [Suspect]
     Active Substance: INDOMETHACIN
     Dosage: UNK

REACTIONS (4)
  - Drug hypersensitivity [Unknown]
  - Urticaria [Unknown]
  - Off label use [Unknown]
  - Product use issue [Unknown]
